FAERS Safety Report 5338043-6 (Version None)
Quarter: 2007Q2

REPORT INFORMATION
  Report Type: 
  Country: None (occurrence: None)
  Receive Date: 20070530
  Receipt Date: 20070521
  Transmission Date: 20071010
  Serious: Yes (Other)
  Sender: FDA-Public Use
  Company Number: PHEH2007US04199

PATIENT
  Age: 57 Year
  Sex: Female
  Weight: 86.167 kg

DRUGS (5)
  1. ZELNORM [Suspect]
     Indication: IMPAIRED GASTRIC EMPTYING
     Dosage: 6 MG, BID
     Route: 048
     Dates: start: 20061201, end: 20070330
  2. DIOVAN [Concomitant]
     Dosage: UNK, QD
  3. METFORMIN HYDROCHLORIDE [Concomitant]
     Dosage: 500 MG, BID
  4. MIRALAX [Concomitant]
     Dosage: 1 TB IN 8 OZ WATER DAILY
  5. PREVACID [Concomitant]
     Dosage: 30 MG, QD

REACTIONS (8)
  - ARRHYTHMIA [None]
  - BLOOD PRESSURE FLUCTUATION [None]
  - CONDITION AGGRAVATED [None]
  - DIZZINESS [None]
  - HYPERTENSION [None]
  - NAUSEA [None]
  - VERTIGO [None]
  - VOMITING [None]
